FAERS Safety Report 16763256 (Version 3)
Quarter: 2019Q3

REPORT INFORMATION
  Report Type: Report from Study
  Country: US (occurrence: US)
  Receive Date: 20190902
  Receipt Date: 20190929
  Transmission Date: 20191005
  Serious: Yes (Other)
  Sender: FDA-Public Use
  Company Number: PHEH2019US035526

PATIENT
  Age: 67 Year
  Sex: Female

DRUGS (1)
  1. PIQRAY [Suspect]
     Active Substance: ALPELISIB
     Indication: BREAST CANCER
     Dosage: 300 MG, UNK
     Route: 048
     Dates: start: 20190807, end: 20190817

REACTIONS (27)
  - Urticaria [Unknown]
  - Stomatitis [Recovering/Resolving]
  - Asthenia [Unknown]
  - Blood alkaline phosphatase increased [Unknown]
  - Blood sodium decreased [Unknown]
  - Blood urea increased [Unknown]
  - Blood glucose increased [Unknown]
  - Blood calcium decreased [Unknown]
  - Drug intolerance [Unknown]
  - Rash [Recovered/Resolved]
  - Diarrhoea [Unknown]
  - Blister [Unknown]
  - Skin exfoliation [Unknown]
  - Red cell distribution width increased [Unknown]
  - Renal function test abnormal [Unknown]
  - Pain of skin [Unknown]
  - Mean cell haemoglobin increased [Unknown]
  - Blood chloride decreased [Unknown]
  - Mass [Unknown]
  - Alanine aminotransferase decreased [Unknown]
  - Blood creatinine increased [Unknown]
  - Type I hypersensitivity [Unknown]
  - Throat tightness [Unknown]
  - Gastric disorder [Unknown]
  - Dyspnoea [Recovered/Resolved]
  - Blood potassium decreased [Unknown]
  - Mucosal inflammation [Recovered/Resolved]

NARRATIVE: CASE EVENT DATE: 20190817
